FAERS Safety Report 5981204-3 (Version None)
Quarter: 2008Q4

REPORT INFORMATION
  Report Type: 
  Country: None (occurrence: None)
  Receive Date: 20081205
  Receipt Date: 20081128
  Transmission Date: 20090506
  Serious: Yes (Death)
  Sender: FDA-Public Use
  Company Number: B0548297A

PATIENT
  Age: 58 Year
  Sex: Male
  Weight: 170 kg

DRUGS (8)
  1. ROSIGLITAZONE [Suspect]
     Route: 048
     Dates: start: 20060801, end: 20070701
  2. DOXAZOSIN MESYLATE [Concomitant]
     Dosage: 2MG PER DAY
  3. SIMVASTATIN [Concomitant]
     Dosage: 10MG PER DAY
  4. METFORMIN HCL [Concomitant]
     Dosage: 1500MG PER DAY
  5. GLIMEPIRIDE [Concomitant]
     Dosage: 4MG PER DAY
  6. FENOFIBRATE MICRO [Concomitant]
     Dosage: 267MG PER DAY
  7. ATENOLOL [Concomitant]
     Dosage: 140MG PER DAY
  8. NIFEDIPINE [Concomitant]
     Dosage: 40MG PER DAY

REACTIONS (1)
  - CARDIOMYOPATHY [None]
